FAERS Safety Report 4596027-X (Version None)
Quarter: 2005Q1

REPORT INFORMATION
  Report Type: 
  Country: None (occurrence: None)
  Receive Date: 20050225
  Receipt Date: 20050211
  Transmission Date: 20050727
  Serious: Yes (Death)
  Sender: FDA-Public Use
  Company Number: SEWYE450523FEB05

PATIENT

DRUGS (1)
  1. EFFEXOR [Suspect]
     Dosage: 150 MG 1 TIME PER DAY (VIA THE MOTHER'S INTAKE), TRANSPLACENTAL
     Route: 064
     Dates: start: 20040701, end: 20041009

REACTIONS (6)
  - ABORTION INDUCED [None]
  - ANENCEPHALY [None]
  - DRUG EXPOSURE DURING PREGNANCY [None]
  - ENCEPHALOCELE [None]
  - MENINGOCELE [None]
  - SKULL MALFORMATION [None]
